FAERS Safety Report 5020694-X (Version None)
Quarter: 2006Q2

REPORT INFORMATION
  Report Type: 
  Country: None (occurrence: None)
  Receive Date: 20060602
  Receipt Date: 20060314
  Transmission Date: 20061013
  Serious: Yes (Other)
  Sender: FDA-Public Use
  Company Number: US200602004658

PATIENT
  Age: 90 Year
  Sex: Female
  Weight: 59.9 kg

DRUGS (10)
  1. CYMBALTA [Suspect]
     Indication: PAIN
     Dosage: 30 MG, DAILY (1/D), ORAL
     Route: 048
     Dates: start: 20060101
  2. NEXIUM [Concomitant]
  3. BETAPACE [Concomitant]
  4. MONOPRIL [Concomitant]
  5. LASIX [Concomitant]
  6. COUMADIN [Concomitant]
  7. LIPITOR [Concomitant]
  8. CALCIUM (CALCIUM) [Concomitant]
  9. VALIUM /NET/ (DIAZEPAM) [Concomitant]
  10. DARVOCET-N 100 [Concomitant]

REACTIONS (6)
  - ABDOMINAL DISTENSION [None]
  - BACK PAIN [None]
  - DYSPEPSIA [None]
  - FALL [None]
  - NAUSEA [None]
  - SPINAL FRACTURE [None]
